FAERS Safety Report 9053314 (Version 2)
Quarter: 2013Q3

REPORT INFORMATION
  Report Type: Spontaneous
  Country: US (occurrence: US)
  Receive Date: 20130207
  Receipt Date: 20130829
  Transmission Date: 20140515
  Serious: Yes (Hospitalization)
  Sender: FDA-Public Use
  Company Number: US-B.I. PHARMACEUTICALS,INC./RIDGEFIELD-2013-BI-02896BP

PATIENT
  Sex: Female
  Weight: 120.2 kg

DRUGS (12)
  1. PRADAXA [Suspect]
     Indication: ATRIAL FIBRILLATION
     Dosage: 300 MG
     Route: 048
     Dates: start: 20110501, end: 20120208
  2. B 12 [Concomitant]
     Dosage: 150 MCG
     Route: 048
  3. COMBIVENT [Concomitant]
     Route: 055
  4. DUONEB [Concomitant]
     Route: 055
  5. FERROUS SULFATE [Concomitant]
     Dosage: 325 MG
     Route: 048
  6. FUROSEMIDE [Concomitant]
     Route: 048
  7. HYDRALAZINE HCL [Concomitant]
     Dosage: 50 MG
     Route: 048
  8. LEVOTHYROXINE SODIUM [Concomitant]
     Dosage: 150 MCG
     Route: 048
  9. METOPROLOL TARTRATE [Concomitant]
     Dosage: 200 MG
     Route: 048
  10. POTASSIUM CHLORIDE [Concomitant]
     Dosage: 20 MEQ
     Route: 048
  11. SPIRIVA HANDIHALER [Concomitant]
     Dosage: 1 PUF
     Route: 055
  12. VALSARTAN [Concomitant]
     Dosage: 320 MG
     Route: 048

REACTIONS (4)
  - Gastrointestinal haemorrhage [Unknown]
  - Rectal haemorrhage [Unknown]
  - Respiratory failure [Unknown]
  - Coagulopathy [Unknown]
